FAERS Safety Report 7628831-5 (Version None)
Quarter: 2011Q3

REPORT INFORMATION
  Report Type: 
  Country: None (occurrence: None)
  Receive Date: 20110722
  Receipt Date: 20110715
  Transmission Date: 20111222
  Serious: Yes (Other)
  Sender: FDA-Public Use
  Company Number: BR-SANOFI-AVENTIS-2011SA045538

PATIENT
  Age: 34 Year
  Sex: Male
  Weight: 54 kg

DRUGS (4)
  1. CAPTOPRIL [Concomitant]
     Indication: BLOOD PRESSURE
     Route: 048
     Dates: start: 20100101
  2. LANTUS [Suspect]
     Indication: TYPE 1 DIABETES MELLITUS
     Dosage: 40 IU IN THE MORNING AND 20 IU AT NIGHT
     Route: 058
     Dates: start: 20090101
  3. NEOSALDINA [Concomitant]
     Indication: EYE PAIN
     Route: 048
     Dates: start: 20110101
  4. INSULIN LISPRO [Concomitant]
     Indication: TYPE 1 DIABETES MELLITUS
     Dosage: 4 IU IN THE MORNING, 6 IU AT LUNCH AND 4 IU AT DINNER
     Route: 058
     Dates: start: 20090101

REACTIONS (5)
  - VISUAL ACUITY REDUCED [None]
  - BLINDNESS UNILATERAL [None]
  - HYPOGLYCAEMIA [None]
  - RETINAL DETACHMENT [None]
  - HYPOGLYCAEMIC UNCONSCIOUSNESS [None]
